FAERS Safety Report 4763415-8 (Version None)
Quarter: 2005Q3

REPORT INFORMATION
  Report Type: 
  Country: None (occurrence: None)
  Receive Date: 20050907
  Receipt Date: 20050907
  Transmission Date: 20060218
  Serious: Yes (Life-Threatening)
  Sender: FDA-Public Use
  Company Number: None

PATIENT
  Sex: Male
  Weight: 61.2356 kg

DRUGS (1)
  1. PROCRIT [Suspect]
     Indication: HAEMOLYTIC ANAEMIA
     Dates: start: 20050501, end: 20050727

REACTIONS (2)
  - HEADACHE [None]
  - SUBDURAL HAEMATOMA [None]
